FAERS Safety Report 5134418-9 (Version None)
Quarter: 2006Q4

REPORT INFORMATION
  Report Type: 
  Country: None (occurrence: None)
  Receive Date: 20061023
  Receipt Date: 20061023
  Transmission Date: 20070319
  Serious: Yes (Other)
  Sender: FDA-Public Use
  Company Number: None

PATIENT
  Age: 41 Year
  Sex: Female
  Weight: 61.2356 kg

DRUGS (1)
  1. ZOCOR [Suspect]
     Indication: BLOOD CHOLESTEROL INCREASED
     Dosage: 20MG 1X PER DAY PO
     Route: 048
     Dates: start: 20060707, end: 20060930

REACTIONS (12)
  - ANOREXIA [None]
  - ARTHRALGIA [None]
  - DISTURBANCE IN ATTENTION [None]
  - FATIGUE [None]
  - HYPERSENSITIVITY [None]
  - JOINT STIFFNESS [None]
  - MIGRAINE [None]
  - MYALGIA [None]
  - NAUSEA [None]
  - NERVOUS SYSTEM DISORDER [None]
  - PAROSMIA [None]
  - TENDERNESS [None]
